FAERS Safety Report 6725758-8 (Version None)
Quarter: 2010Q2

REPORT INFORMATION
  Report Type: 
  Country: None (occurrence: None)
  Receive Date: 20100513
  Receipt Date: 20100513
  Transmission Date: 20101027
  Serious: Yes (Hospitalization)
  Sender: FDA-Public Use
  Company Number: None

PATIENT
  Sex: Female
  Weight: 71 kg

DRUGS (16)
  1. VELCADE [Suspect]
     Indication: MULTIPLE MYELOMA
     Dates: end: 20100503
  2. DOXIL [Suspect]
     Indication: MULTIPLE MYELOMA
     Dates: end: 20100426
  3. ZOLINZA [Suspect]
     Indication: MULTIPLE MYELOMA
     Dates: end: 20100506
  4. ZOFRAN [Concomitant]
  5. MARINOL [Concomitant]
  6. ATIVAN [Concomitant]
  7. MULTI-VITAMIN [Concomitant]
  8. CALCIUM SUPP [Concomitant]
  9. NORVASC [Concomitant]
  10. ZOMETA [Concomitant]
  11. ACYCLOVIR [Concomitant]
  12. COMPAZINE [Concomitant]
  13. VIT B6 [Concomitant]
  14. SENNA [Concomitant]
  15. STOOL SOFTENER [Concomitant]
  16. POTASSIUM SUPP [Concomitant]

REACTIONS (8)
  - ANAEMIA [None]
  - BLOOD CREATININE INCREASED [None]
  - DEHYDRATION [None]
  - HAEMATEMESIS [None]
  - MALLORY-WEISS SYNDROME [None]
  - MALNUTRITION [None]
  - NAUSEA [None]
  - THROMBOCYTOPENIA [None]
